FAERS Safety Report 8075319-6 (Version None)
Quarter: 2012Q1

REPORT INFORMATION
  Report Type: 
  Country: None (occurrence: None)
  Receive Date: 20120127
  Receipt Date: 20120116
  Transmission Date: 20120608
  Serious: Yes (Hospitalization)
  Sender: FDA-Public Use
  Company Number: FR-JNJFOC-20120107703

PATIENT
  Sex: Female

DRUGS (11)
  1. RISPERDAL [Suspect]
     Route: 048
     Dates: start: 20101220
  2. LIORESAL [Concomitant]
     Indication: PRODUCT USED FOR UNKNOWN INDICATION
     Route: 065
  3. POLYETHYLENE GLYCOL [Concomitant]
     Indication: CONSTIPATION
     Route: 048
  4. CLONAZEPAM [Suspect]
     Indication: EPILEPSY
     Route: 065
  5. TIAPRIDAL [Suspect]
     Indication: AGITATION
     Route: 030
     Dates: start: 20101220, end: 20111129
  6. CLONAZEPAM [Suspect]
     Route: 065
     Dates: start: 20101220
  7. AMITRIPTYLINE HCL [Suspect]
     Indication: DEPRESSION
     Route: 048
     Dates: start: 20101220, end: 20111129
  8. CALCIUM CARBONATE [Concomitant]
     Indication: CALCIUM DEFICIENCY
     Route: 048
  9. RISPERDAL [Suspect]
     Indication: AGGRESSION
     Route: 048
  10. TERCIAN [Suspect]
     Indication: INSOMNIA
     Route: 048
     Dates: start: 20101220, end: 20111129
  11. ALENDRONATE SODIUM [Concomitant]
     Indication: OSTEOPOROSIS
     Route: 048

REACTIONS (7)
  - EPILEPSY [None]
  - ASTHENIA [None]
  - MULTIPLE DRUG OVERDOSE [None]
  - AUTONOMIC NEUROPATHY [None]
  - SOMNOLENCE [None]
  - CONFUSIONAL STATE [None]
  - CEREBROVASCULAR ACCIDENT [None]
